FAERS Safety Report 5020588-X (Version None)
Quarter: 2006Q2

REPORT INFORMATION
  Report Type: 
  Country: None (occurrence: None)
  Receive Date: 20060602
  Receipt Date: 20060522
  Transmission Date: 20061013
  Serious: Yes (Hospitalization)
  Sender: FDA-Public Use
  Company Number: 2006BI005531

PATIENT
  Sex: Female
  Weight: 56.6996 kg

DRUGS (7)
  1. AVONEX [Suspect]
     Indication: MULTIPLE SCLEROSIS
     Dosage: 30 UG;QW;IM
     Route: 030
     Dates: start: 20010101
  2. AVONEX [Suspect]
     Indication: MULTIPLE SCLEROSIS
     Dosage: 15 UG;QW;IM
     Route: 030
  3. ZYPREXA [Concomitant]
  4. TRAZODONE HCL [Concomitant]
  5. DETROL [Concomitant]
  6. KLONOPIN [Concomitant]
  7. EFFEXOR [Concomitant]

REACTIONS (5)
  - DELUSION [None]
  - HALLUCINATION [None]
  - HALLUCINATION, AUDITORY [None]
  - MENTAL DISORDER DUE TO A GENERAL MEDICAL CONDITION [None]
  - SOMNOLENCE [None]
